FAERS Safety Report 12476590 (Version 3)
Quarter: 2016Q3

REPORT INFORMATION
  Report Type: Spontaneous
  Country: US (occurrence: US)
  Receive Date: 20160617
  Receipt Date: 20160712
  Transmission Date: 20161109
  Serious: Yes (Hospitalization)
  Sender: FDA-Public Use
  Company Number: US-ELI_LILLY_AND_COMPANY-US201606004892

PATIENT
  Age: 59 Year
  Sex: Female
  Weight: 173.24 kg

DRUGS (16)
  1. ATROVENT [Concomitant]
     Active Substance: IPRATROPIUM BROMIDE
  2. HUMIRA [Concomitant]
     Active Substance: ADALIMUMAB
  3. FUROSEMIDE. [Concomitant]
     Active Substance: FUROSEMIDE
  4. ZOLPIDEM [Concomitant]
     Active Substance: ZOLPIDEM\ZOLPIDEM TARTRATE
  5. LEVOTHYROXINE. [Concomitant]
     Active Substance: LEVOTHYROXINE
  6. ADCIRCA [Suspect]
     Active Substance: TADALAFIL
     Indication: PRODUCT USED FOR UNKNOWN INDICATION
     Dosage: UNK, UNKNOWN
     Route: 065
  7. REMODULIN [Suspect]
     Active Substance: TREPROSTINIL
     Indication: PULMONARY ARTERIAL HYPERTENSION
     Dosage: 0.029 UG/KG
     Route: 042
     Dates: start: 20150523
  8. VOLTAREN [Concomitant]
     Active Substance: DICLOFENAC SODIUM
  9. MECLIZINE [Concomitant]
     Active Substance: MECLIZINE HYDROCHLORIDE
  10. REMODULIN [Suspect]
     Active Substance: TREPROSTINIL
     Dosage: 2.5 MG, UNKNOWN
     Route: 042
  11. CYCLOBENZAPRINE [Concomitant]
     Active Substance: CYCLOBENZAPRINE
  12. TOPAMAX [Concomitant]
     Active Substance: TOPIRAMATE
  13. BENADRYL [Concomitant]
     Active Substance: DIPHENHYDRAMINE HYDROCHLORIDE
  14. AMBRISENTAN [Suspect]
     Active Substance: AMBRISENTAN
     Indication: PULMONARY HYPERTENSION
     Dosage: 10 MG, QD
     Route: 065
     Dates: start: 20131011
  15. ELIQUIS [Concomitant]
     Active Substance: APIXABAN
  16. POTASSIUM [Concomitant]
     Active Substance: POTASSIUM

REACTIONS (3)
  - Chest pain [Not Recovered/Not Resolved]
  - Dyspnoea [Unknown]
  - Hyperkalaemia [Unknown]
